FAERS Safety Report 10270374 (Version 1)
Quarter: 2014Q2

REPORT INFORMATION
  Report Type: Spontaneous
  Country: US (occurrence: None)
  Receive Date: 20140627
  Receipt Date: 20140627
  Transmission Date: 20141212
  Serious: Yes (Hospitalization)
  Sender: FDA-Public Use
  Company Number: None

PATIENT
  Age: 77 Year
  Sex: Male
  Weight: 64.1 kg

DRUGS (2)
  1. BENDAMUSTINE HYDROCHLORIDE [Suspect]
     Dates: start: 20140530
  2. RITUXIMAB (MOAB C2B8 ANTI CD20, CLIMERIC) [Suspect]
     Dates: start: 20140528

REACTIONS (2)
  - Blood pressure decreased [None]
  - Body temperature increased [None]
